FAERS Safety Report 8249692-X (Version None)
Quarter: 2012Q2

REPORT INFORMATION
  Report Type: 
  Country: None (occurrence: None)
  Receive Date: 20120402
  Receipt Date: 20120322
  Transmission Date: 20120825
  Serious: Yes (Other)
  Sender: FDA-Public Use
  Company Number: JP-BRISTOL-MYERS SQUIBB COMPANY-16207300

PATIENT
  Age: 75 Year
  Sex: Male

DRUGS (6)
  1. METHOTREXATE [Suspect]
     Dates: start: 20090910
  2. RABEPRAZOLE SODIUM [Concomitant]
     Dosage: 1DF:1 TAB  FORMULATION: PARIET 10MG.
  3. VOLTAREN [Concomitant]
     Indication: RHEUMATOID ARTHRITIS
  4. ORENCIA [Suspect]
     Indication: RHEUMATOID ARTHRITIS
     Dosage: ROUTE: IV DRIP OVER 30 MIN. ALSO TAKEN ON 27FEB,28MAR,27APR,25MAY,22JUN11.
     Route: 041
     Dates: start: 20110201, end: 20110720
  5. FOLIC ACID [Concomitant]
  6. SELBEX [Concomitant]
     Dosage: 1DF: 2TO 3CAPS,FORMULATION: SELBEX 50MG

REACTIONS (1)
  - SALIVARY GLAND CALCULUS [None]
